FAERS Safety Report 5003072-9 (Version None)
Quarter: 2006Q2

REPORT INFORMATION
  Report Type: 
  Country: None (occurrence: None)
  Receive Date: 20060516
  Receipt Date: 20050204
  Transmission Date: 20061013
  Serious: Yes (Hospitalization)
  Sender: FDA-Public Use
  Company Number: FR-ROCHE-394649

PATIENT
  Age: 43 Year
  Sex: Male
  Weight: 82 kg

DRUGS (4)
  1. PEG-INTERFERON ALFA 2A (RO 25-8310) [Suspect]
     Route: 058
     Dates: start: 20041015, end: 20050120
  2. RIBAVIRIN [Suspect]
     Route: 048
     Dates: start: 20041015, end: 20050206
  3. FLU VACCINE [Concomitant]
     Dates: start: 20050121
  4. TERCIAN [Concomitant]
     Dosage: REPORTED AS TERCIAN 25 MG. ADMINISTERED QD.

REACTIONS (4)
  - ARTHRALGIA [None]
  - MYALGIA [None]
  - NEPHROTIC SYNDROME [None]
  - PYREXIA [None]
